FAERS Safety Report 9867265 (Version 1)
Quarter: 2014Q1

REPORT INFORMATION
  Report Type: Spontaneous
  Country: GB (occurrence: GB)
  Receive Date: 20140204
  Receipt Date: 20140204
  Transmission Date: 20141002
  Serious: Yes (Life-Threatening)
  Sender: FDA-Public Use
  Company Number: GB-BRISTOL-MYERS SQUIBB COMPANY-20101457

PATIENT
  Age: 47 Year
  Sex: Male

DRUGS (9)
  1. ABILIFY [Suspect]
     Indication: BIPOLAR DISORDER
     Route: 048
     Dates: start: 20131204
  2. ASPIRIN [Concomitant]
  3. CO-DYDRAMOL [Concomitant]
  4. DICLOFENAC [Concomitant]
  5. FLUOXETINE [Concomitant]
  6. GLYCERYL TRINITRATE [Concomitant]
  7. LANSOPRAZOLE [Concomitant]
  8. RAMIPRIL [Concomitant]
  9. SIMVASTATIN [Concomitant]

REACTIONS (1)
  - Deep vein thrombosis [Recovering/Resolving]
